FAERS Safety Report 8062461-9 (Version None)
Quarter: 2012Q1

REPORT INFORMATION
  Report Type: 
  Country: None (occurrence: None)
  Receive Date: 20120123
  Receipt Date: 20120120
  Transmission Date: 20120608
  Serious: No
  Sender: FDA-Public Use
  Company Number: US-BAYER-2012-006639

PATIENT
  Sex: Female
  Weight: 68.027 kg

DRUGS (4)
  1. ESCITALOPRAM [Concomitant]
     Indication: DEPRESSION
  2. MIRENA [Suspect]
  3. PANTOPRAZOLE [Concomitant]
     Indication: GASTROOESOPHAGEAL REFLUX DISEASE
  4. ATENOLOL [Concomitant]
     Indication: MITRAL VALVE PROLAPSE

REACTIONS (1)
  - AMENORRHOEA [None]
